FAERS Safety Report 6451169-9 (Version None)
Quarter: 2009Q4

REPORT INFORMATION
  Report Type: 
  Country: None (occurrence: None)
  Receive Date: 20091123
  Receipt Date: 20090212
  Transmission Date: 20100525
  Serious: Yes (Other)
  Sender: FDA-Public Use
  Company Number: US-AMGEN-QUU333435

PATIENT
  Age: 35 Year
  Sex: Male

DRUGS (3)
  1. ENBREL [Suspect]
     Indication: PSORIATIC ARTHROPATHY
  2. ENBREL [Suspect]
     Indication: PSORIASIS
  3. NAPROXEN [Concomitant]

REACTIONS (3)
  - HIV TEST POSITIVE [None]
  - PSORIASIS [None]
  - PSORIATIC ARTHROPATHY [None]
